FAERS Safety Report 15677664 (Version 2)
Quarter: 2018Q4

REPORT INFORMATION
  Report Type: Report from Study
  Country: GB (occurrence: GB)
  Receive Date: 20181130
  Receipt Date: 20181206
  Transmission Date: 20190205
  Serious: Yes (Death, Hospitalization)
  Sender: FDA-Public Use
  Company Number: PHHY2018GB171519

PATIENT
  Age: 89 Year
  Sex: Female

DRUGS (2)
  1. ENTRESTO [Suspect]
     Active Substance: SACUBITRIL\VALSARTAN
     Dosage: 97/ 103 MG, BID
     Route: 048
     Dates: start: 20180124, end: 20181008
  2. ENTRESTO [Suspect]
     Active Substance: SACUBITRIL\VALSARTAN
     Indication: CARDIAC FAILURE
     Dosage: 97/ 103 MG, BID
     Route: 048
     Dates: start: 20170919, end: 20180123

REACTIONS (6)
  - Intestinal perforation [Fatal]
  - Cardiac valve disease [Fatal]
  - Abdominal pain [Not Recovered/Not Resolved]
  - Chronic kidney disease [Fatal]
  - Blood creatinine increased [Fatal]
  - Myocardial ischaemia [Fatal]

NARRATIVE: CASE EVENT DATE: 20180404
